FAERS Safety Report 9893630 (Version 1)
Quarter: 2014Q1

REPORT INFORMATION
  Report Type: Spontaneous
  Country: FR (occurrence: FR)
  Receive Date: 20140213
  Receipt Date: 20140213
  Transmission Date: 20141002
  Serious: Yes (Hospitalization)
  Sender: FDA-Public Use
  Company Number: FR-ASTRAZENECA-2014SE09061

PATIENT
  Age: 31555 Day
  Sex: Female

DRUGS (16)
  1. CRESTOR [Suspect]
     Route: 048
  2. COUMADINE [Interacting]
     Route: 048
  3. COUMADINE [Interacting]
     Route: 048
  4. COUMADINE [Interacting]
     Route: 048
  5. KARDEGIC [Interacting]
     Route: 048
  6. ALLOPURINOL [Interacting]
     Route: 048
  7. APROVEL [Concomitant]
  8. PANTOPRAZOLE [Concomitant]
  9. FUROSEMIDE [Concomitant]
  10. AMLODIPINE [Concomitant]
  11. KALEORID SR [Concomitant]
  12. SERETIDE [Concomitant]
  13. ATROVENT [Concomitant]
  14. FLISICOL [Concomitant]
  15. PARACETAMOL [Concomitant]
  16. OXYCONTIN SR [Concomitant]

REACTIONS (9)
  - Drug interaction [Unknown]
  - Hypokalaemia [Unknown]
  - Anaemia [Unknown]
  - Haematoma [Recovered/Resolved]
  - International normalised ratio increased [Recovered/Resolved]
  - Gait disturbance [Unknown]
  - Lymphoedema [Unknown]
  - Synovial cyst [Unknown]
  - Pain in extremity [Unknown]
